FAERS Safety Report 6270352-9 (Version None)
Quarter: 2009Q3

REPORT INFORMATION
  Report Type: 
  Country: None (occurrence: None)
  Receive Date: 20090716
  Receipt Date: 20090708
  Transmission Date: 20100115
  Serious: Yes (Hospitalization)
  Sender: FDA-Public Use
  Company Number: B0578269A

PATIENT
  Sex: Male

DRUGS (6)
  1. RYTMONORM [Suspect]
     Indication: ATRIAL FIBRILLATION
     Route: 042
     Dates: start: 20090518, end: 20090518
  2. GLIBOMET [Concomitant]
  3. ATENOLOL [Concomitant]
  4. WARFARIN SODIUM [Concomitant]
  5. ROSUVASTATIN CALCIUM [Concomitant]
  6. ACETAMINOPHEN AND CODEINE PHOSPHATE [Concomitant]

REACTIONS (2)
  - HYPERHIDROSIS [None]
  - HYPOTENSION [None]
